FAERS Safety Report 18118487 (Version 2)
Quarter: 2021Q2

REPORT INFORMATION
  Report Type: Spontaneous
  Country: None (occurrence: US)
  Receive Date: 20200806
  Receipt Date: 20210624
  Transmission Date: 20210717
  Serious: Yes (Other)
  Sender: FDA-Public Use
  Company Number: US-GLAXOSMITHKLINE-US2020151169

PATIENT
  Sex: Male

DRUGS (6)
  1. ZANTAC [Suspect]
     Active Substance: RANITIDINE HYDROCHLORIDE
     Dosage: 75 MG, QD
     Route: 065
     Dates: start: 198401, end: 201201
  2. RANITIDINE. [Suspect]
     Active Substance: RANITIDINE
     Dosage: UNK, QD
     Route: 065
     Dates: start: 199701, end: 201201
  3. RANITIDINE. [Suspect]
     Active Substance: RANITIDINE
  4. ZANTAC [Suspect]
     Active Substance: RANITIDINE HYDROCHLORIDE
     Dosage: 75 MG, QD
     Route: 065
     Dates: start: 198401, end: 201201
  5. ZANTAC [Suspect]
     Active Substance: RANITIDINE HYDROCHLORIDE
  6. RANITIDINE. [Suspect]
     Active Substance: RANITIDINE
     Dosage: UNK, QD
     Route: 065
     Dates: start: 199701, end: 201201

REACTIONS (2)
  - Gastrointestinal carcinoma [Unknown]
  - Small intestine carcinoma [Unknown]
